FAERS Safety Report 20925441 (Version 1)
Quarter: 2022Q2

REPORT INFORMATION
  Report Type: Spontaneous
  Country: US (occurrence: None)
  Receive Date: 20220607
  Receipt Date: 20220607
  Transmission Date: 20220721
  Serious: Yes (Other)
  Sender: FDA-Public Use
  Company Number: None

PATIENT
  Age: 74 Year
  Sex: Male
  Weight: 82 kg

DRUGS (1)
  1. IOHEXOL [Suspect]
     Active Substance: IOHEXOL
     Indication: Angiogram
     Dosage: MED NAME UNKNOWN BUT IS CONRAST
     Dates: start: 20220328, end: 20220328

REACTIONS (6)
  - Angioedema [None]
  - Rash [None]
  - Swelling [None]
  - Contrast media reaction [None]
  - Pruritus [None]
  - Erythema [None]

NARRATIVE: CASE EVENT DATE: 20220328
